FAERS Safety Report 5451302-1 (Version None)
Quarter: 2007Q3

REPORT INFORMATION
  Report Type: 
  Country: None (occurrence: None)
  Receive Date: 20070911
  Receipt Date: 20070911
  Transmission Date: 20080115
  Serious: Yes (Life-Threatening, Hospitalization)
  Sender: FDA-Public Use
  Company Number: None

PATIENT
  Age: 43 Year
  Sex: Female

DRUGS (4)
  1. KARIVA [Suspect]
     Indication: ORAL CONTRACEPTION
     Dosage: 1 DAILY PO
     Route: 048
  2. SYNTHROID [Concomitant]
  3. AMBIEN [Concomitant]
  4. ALBUTEROL [Concomitant]

REACTIONS (1)
  - TRANSVERSE SINUS THROMBOSIS [None]
